FAERS Safety Report 23113821 (Version 3)
Quarter: 2023Q4

REPORT INFORMATION
  Report Type: Spontaneous
  Country: US (occurrence: US)
  Receive Date: 20231027
  Receipt Date: 20231029
  Transmission Date: 20240110
  Serious: No
  Sender: FDA-Public Use
  Company Number: US-OPELLA-2023OHG009001

PATIENT
  Sex: Female

DRUGS (1)
  1. GOLD BOND ULTIMATE ECZEMA RELIEF [Suspect]
     Active Substance: OATMEAL
     Indication: Product used for unknown indication

REACTIONS (2)
  - Pruritus [Unknown]
  - Drug ineffective [Unknown]
